FAERS Safety Report 6031665-9 (Version None)
Quarter: 2008Q4

REPORT INFORMATION
  Report Type: 
  Country: None (occurrence: None)
  Receive Date: 20081224
  Receipt Date: 20081006
  Transmission Date: 20090506
  Serious: No
  Sender: FDA-Public Use
  Company Number: 2008PV036874

PATIENT
  Age: 43 Year
  Sex: Male
  Weight: 129.2752 kg

DRUGS (3)
  1. SYMLIN [Suspect]
     Indication: TYPE 2 DIABETES MELLITUS
     Dosage: 60 MCG; BID; SC
     Route: 058
     Dates: start: 20081001
  2. METFORMIN HCL [Concomitant]
  3. TOPAMAX [Concomitant]

REACTIONS (1)
  - INCREASED APPETITE [None]
